FAERS Safety Report 13015478 (Version 1)
Quarter: 2016Q4

REPORT INFORMATION
  Report Type: Spontaneous
  Country: US (occurrence: US)
  Receive Date: 20161212
  Receipt Date: 20161212
  Transmission Date: 20170207
  Serious: No
  Sender: FDA-Public Use
  Company Number: US-ASTRAZENECA-2016SF26999

PATIENT
  Age: 76 Year
  Sex: Female
  Weight: 52.2 kg

DRUGS (1)
  1. ANASTROZOLE. [Suspect]
     Active Substance: ANASTROZOLE
     Indication: NEOPLASM MALIGNANT
     Route: 048
     Dates: start: 201404

REACTIONS (5)
  - Lymphoedema [Unknown]
  - Hypersensitivity [Unknown]
  - Breast mass [Unknown]
  - Pain [Unknown]
  - Red blood cell macrocytes present [Unknown]
